FAERS Safety Report 7560646-9 (Version None)
Quarter: 2011Q2

REPORT INFORMATION
  Report Type: 
  Country: None (occurrence: None)
  Receive Date: 20110525
  Receipt Date: 20110218
  Transmission Date: 20111010
  Serious: No
  Sender: FDA-Public Use
  Company Number: 323976

PATIENT
  Age: 41 Year
  Sex: Female

DRUGS (3)
  1. VICTOZA [Suspect]
     Indication: WEIGHT
     Dosage: 1.8 MG, QD, SUBCUTANEOUS
     Route: 058
     Dates: start: 20101101
  2. VICTOZA [Suspect]
     Indication: INSULIN RESISTANT DIABETES
     Dosage: 1.8 MG, QD, SUBCUTANEOUS
     Route: 058
     Dates: start: 20101101
  3. METFORMIN HCL [Concomitant]

REACTIONS (2)
  - DRUG INEFFECTIVE [None]
  - WEIGHT DECREASED [None]
